FAERS Safety Report 8853273 (Version 2)
Quarter: 2014Q3

REPORT INFORMATION
  Report Type: Report from Study
  Country: US (occurrence: US)
  Receive Date: 20121022
  Receipt Date: 20140905
  Transmission Date: 20150326
  Serious: Yes (Other)
  Sender: FDA-Public Use
  Company Number: US-ROCHE-1130828

PATIENT
  Sex: Female

DRUGS (4)
  1. CYTOXAN [Concomitant]
     Active Substance: CYCLOPHOSPHAMIDE
  2. PREDNISONE. [Concomitant]
     Active Substance: PREDNISONE
     Route: 048
  3. RITUXAN [Suspect]
     Active Substance: RITUXIMAB
     Indication: THROMBOCYTOPENIA
     Route: 042
     Dates: start: 20010711
  4. VINCRISTINE [Concomitant]
     Active Substance: VINCRISTINE
     Route: 042

REACTIONS (9)
  - Immune thrombocytopenic purpura [Unknown]
  - Petechiae [Unknown]
  - Oral pain [Unknown]
  - Tongue blistering [Unknown]
  - No therapeutic response [Unknown]
  - Off label use [Unknown]
  - Melaena [Unknown]
  - Oral mucosal blistering [Unknown]
  - Pain [Unknown]
